FAERS Safety Report 5097088-4 (Version None)
Quarter: 2006Q3

REPORT INFORMATION
  Report Type: 
  Country: None (occurrence: None)
  Receive Date: 20060831
  Receipt Date: 20060818
  Transmission Date: 20061208
  Serious: Yes (Hospitalization, Other)
  Sender: FDA-Public Use
  Company Number: 2006BH011014

PATIENT
  Age: 19 Year
  Sex: Male
  Weight: 57.6068 kg

DRUGS (19)
  1. IVEEGAM [Suspect]
     Indication: IMMUNODEFICIENCY COMMON VARIABLE
     Dosage: SEE IMAGE
     Route: 042
     Dates: start: 20060804, end: 20060805
  2. IVEEGAM [Suspect]
     Indication: IMMUNODEFICIENCY CONGENITAL
     Dosage: SEE IMAGE
     Route: 042
     Dates: start: 20060804, end: 20060805
  3. IVEEGAM [Suspect]
     Indication: IMMUNODEFICIENCY COMMON VARIABLE
     Dosage: SEE IMAGE
     Route: 042
     Dates: start: 20060526
  4. IVEEGAM [Suspect]
     Indication: IMMUNODEFICIENCY CONGENITAL
     Dosage: SEE IMAGE
     Route: 042
     Dates: start: 20060526
  5. IVEEGAM [Suspect]
  6. SOLU-CORTEF [Concomitant]
  7. PREDNISONE TAB [Concomitant]
  8. IMURAN [Concomitant]
  9. BUDESONIDE [Concomitant]
  10. PENTASA [Concomitant]
  11. HYDRODIURIL [Concomitant]
  12. METAMUCIL [Concomitant]
  13. BUSCOPAN [Concomitant]
  14. LOSEC [Concomitant]
  15. ASCORBIC ACID [Concomitant]
  16. MULTIVITAMIN [Concomitant]
  17. BENADRYL [Concomitant]
  18. BENADRYL [Concomitant]
  19. ZANTAC [Concomitant]

REACTIONS (5)
  - ANAPHYLACTIC REACTION [None]
  - BLOOD PRESSURE DECREASED [None]
  - BLOOD PRESSURE INCREASED [None]
  - FALSE NEGATIVE LABORATORY RESULT [None]
  - INFUSION RELATED REACTION [None]
